FAERS Safety Report 19689058 (Version 1)
Quarter: 2021Q3

REPORT INFORMATION
  Report Type: Spontaneous
  Country: US (occurrence: US)
  Receive Date: 20210812
  Receipt Date: 20210812
  Transmission Date: 20211014
  Serious: Yes (Other)
  Sender: FDA-Public Use
  Company Number: US-SA-2021SA264482

PATIENT
  Age: 20 Year
  Sex: Female

DRUGS (1)
  1. DUPIXENT [Suspect]
     Active Substance: DUPILUMAB
     Indication: DERMATITIS ATOPIC
     Dosage: 300 MG, QOW
     Dates: end: 202106

REACTIONS (6)
  - Hypoaesthesia [Recovering/Resolving]
  - Lung neoplasm malignant [Unknown]
  - Nasopharyngitis [Not Recovered/Not Resolved]
  - Paraesthesia [Recovering/Resolving]
  - Feeling abnormal [Not Recovered/Not Resolved]
  - Productive cough [Unknown]

NARRATIVE: CASE EVENT DATE: 202108
